FAERS Safety Report 10697568 (Version 1)
Quarter: 2015Q1

REPORT INFORMATION
  Report Type: Spontaneous
  Country: FR (occurrence: FR)
  Receive Date: 20150108
  Receipt Date: 20150108
  Transmission Date: 20150721
  Serious: Yes (Hospitalization)
  Sender: FDA-Public Use
  Company Number: FR-SA-2015SA001747

PATIENT
  Age: 75 Year
  Sex: Male

DRUGS (12)
  1. DALACIN [Suspect]
     Active Substance: CLINDAMYCIN\CLINDAMYCIN PHOSPHATE
     Indication: OSTEITIS
     Route: 048
     Dates: start: 20140620, end: 20140716
  2. KARDEGIC [Concomitant]
     Active Substance: ASPIRIN LYSINE
  3. HUMALOG [Concomitant]
     Active Substance: INSULIN LISPRO
  4. RIFADINE [Suspect]
     Active Substance: RIFAMPIN
     Indication: OSTEITIS
     Route: 048
     Dates: start: 20140620, end: 20140716
  5. CIFLOX [Suspect]
     Active Substance: CIPROFLOXACIN
     Indication: OSTEITIS
     Route: 048
     Dates: start: 20140620, end: 20140716
  6. NICORANDIL [Concomitant]
     Active Substance: NICORANDIL
  7. TAHOR [Concomitant]
     Active Substance: ATORVASTATIN CALCIUM
     Indication: HYPERLIPIDAEMIA
     Dosage: TALFIL, STRENGTH: 40 MG
     Route: 048
  8. BACTRIM [Suspect]
     Active Substance: SULFAMETHOXAZOLE\TRIMETHOPRIM
     Indication: OSTEITIS
     Route: 048
     Dates: start: 20140620
  9. TRINITRINE [Concomitant]
     Active Substance: NITROGLYCERIN
  10. TARDYFERON [Concomitant]
     Active Substance: FERROUS SULFATE\FOLIC ACID
  11. LEVEMIR [Concomitant]
     Active Substance: INSULIN DETEMIR
  12. ACEBUTOLOL [Concomitant]
     Active Substance: ACEBUTOLOL

REACTIONS (3)
  - Dehydration [Unknown]
  - Vomiting [Unknown]
  - Diarrhoea [Unknown]

NARRATIVE: CASE EVENT DATE: 20140716
